FAERS Safety Report 12978165 (Version 1)
Quarter: 2016Q4

REPORT INFORMATION
  Report Type: Report from Study
  Country: ZA (occurrence: ZA)
  Receive Date: 20161128
  Receipt Date: 20161128
  Transmission Date: 20170207
  Serious: Yes (Death)
  Sender: FDA-Public Use
  Company Number: ZA-BAYER-2016-224901

PATIENT
  Age: 67 Year
  Sex: Female

DRUGS (7)
  1. ASPIRIN. [Suspect]
     Active Substance: ASPIRIN
     Dosage: DAILY DOSE 150 MG
  2. VITAMIN B6 [Concomitant]
     Active Substance: PYRIDOXINE HYDROCHLORIDE
     Dosage: 25 MG, DAILY
     Route: 048
  3. METRONIDAZOLE. [Concomitant]
     Active Substance: METRONIDAZOLE
     Dosage: 400 MG, BID
     Route: 048
  4. NIFEDIPINE XL [Concomitant]
     Active Substance: NIFEDIPINE
     Dosage: 60 MG, QD DAILY
     Route: 048
  5. METFORMIN [Concomitant]
     Active Substance: METFORMIN HYDROCHLORIDE
     Dosage: 500 MG, QD
     Route: 048
  6. COTRIMOXAZOLE [Concomitant]
     Active Substance: SULFAMETHOXAZOLE\TRIMETHOPRIM
     Dosage: 2 DF, BID
     Route: 048
  7. PERINDOPRIL [Concomitant]
     Active Substance: PERINDOPRIL
     Dosage: 4 MG, QD DAILY
     Route: 048

REACTIONS (3)
  - Subdural haemorrhage [Fatal]
  - Subarachnoid haemorrhage [Fatal]
  - Brain stem haemorrhage [Fatal]

NARRATIVE: CASE EVENT DATE: 201309
